FAERS Safety Report 5098681-5 (Version None)
Quarter: 2006Q3

REPORT INFORMATION
  Report Type: 
  Country: None (occurrence: None)
  Receive Date: 20060905
  Receipt Date: 20060821
  Transmission Date: 20061208
  Serious: Yes (Hospitalization)
  Sender: FDA-Public Use
  Company Number: 2006SP000028

PATIENT
  Age: 65 Year
  Sex: Female
  Weight: 118.8424 kg

DRUGS (19)
  1. PEG-INTRON [Suspect]
     Indication: HEPATITIS C
     Dosage: SC
     Route: 058
     Dates: start: 20060113
  2. REBETOL [Suspect]
     Indication: HEPATITIS C
     Dosage: PO
     Route: 048
     Dates: start: 20060113
  3. ASACOL [Concomitant]
  4. CALCIUM GLUCONATE [Concomitant]
  5. CLARITIN [Concomitant]
  6. DIOVAN [Concomitant]
  7. FLONASE [Concomitant]
  8. FOLIC ACID [Concomitant]
  9. LORAZEPAM [Concomitant]
  10. METHOCARBAMOL [Concomitant]
  11. GLUCOSAMINE COMPLEX [Concomitant]
  12. VITAMIN CAP [Concomitant]
  13. PREMARIN [Concomitant]
  14. TRAZODONE HCL [Concomitant]
  15. TRIAMTERENE AND HYDROCHLOROTHIAZIDE [Concomitant]
  16. VERAPAMIL HCL A [Concomitant]
  17. VITAMIN B COMPLEX CAP [Concomitant]
  18. ZANTAC [Concomitant]
  19. DONNATAL [Concomitant]

REACTIONS (10)
  - ABDOMINAL PAIN UPPER [None]
  - ANAEMIA [None]
  - ANKLE FRACTURE [None]
  - ANOREXIA [None]
  - FAECES DISCOLOURED [None]
  - NAUSEA [None]
  - PEPTIC ULCER HAEMORRHAGE [None]
  - VOMITING [None]
  - WEIGHT DECREASED [None]
  - WHITE BLOOD CELL COUNT DECREASED [None]
